FAERS Safety Report 10955961 (Version 1)
Quarter: 2015Q1

REPORT INFORMATION
  Report Type: Report from Study
  Country: US (occurrence: None)
  Receive Date: 20150324
  Receipt Date: 20150324
  Transmission Date: 20150721
  Serious: Yes (Hospitalization)
  Sender: FDA-Public Use
  Company Number: US-001779

PATIENT
  Age: 57 Year
  Sex: Female

DRUGS (11)
  1. AMITRIPTYLINE [Concomitant]
     Active Substance: AMITRIPTYLINE
  2. CODEINE [Concomitant]
     Active Substance: CODEINE
  3. OPIUM TINCTURE [Concomitant]
     Active Substance: OPIUM TINCTURE
  4. GATTEX [Suspect]
     Active Substance: TEDUGLUTIDE\WATER
     Indication: SHORT-BOWEL SYNDROME
     Route: 058
     Dates: start: 20130919
  5. BUSPIRONE [Concomitant]
     Active Substance: BUSPIRONE HYDROCHLORIDE
  6. LOMOTIL [Concomitant]
     Active Substance: ATROPINE SULFATE\DIPHENOXYLATE HYDROCHLORIDE
  7. ALOSETRON [Concomitant]
     Active Substance: ALOSETRON
  8. GABAPENTIN. [Concomitant]
     Active Substance: GABAPENTIN
  9. CELECOXIB. [Concomitant]
     Active Substance: CELECOXIB
  10. PROTONIX [Concomitant]
     Active Substance: PANTOPRAZOLE SODIUM
  11. ATIVAN [Concomitant]
     Active Substance: LORAZEPAM

REACTIONS (6)
  - Polydipsia [None]
  - Post procedural complication [None]
  - Diarrhoea [None]
  - Urinary bladder rupture [None]
  - Joint range of motion decreased [None]
  - Peripheral swelling [None]

NARRATIVE: CASE EVENT DATE: 20150208
